FAERS Safety Report 19925747 (Version 1)
Quarter: 2021Q4

REPORT INFORMATION
  Report Type: Spontaneous
  Country: US (occurrence: US)
  Receive Date: 20211007
  Receipt Date: 20211007
  Transmission Date: 20220303
  Serious: No
  Sender: FDA-Public Use
  Company Number: US-GLAXOSMITHKLINE-USCH2021067229

PATIENT
  Age: 59 Year
  Sex: Male

DRUGS (1)
  1. NICODERM CQ [Suspect]
     Active Substance: NICOTINE
     Indication: Drug withdrawal maintenance therapy
     Dosage: UNK
     Dates: start: 20210925, end: 20210926

REACTIONS (5)
  - Dizziness [Recovering/Resolving]
  - Vomiting [Recovering/Resolving]
  - Cough [Unknown]
  - Vertigo [Recovering/Resolving]
  - Head discomfort [Unknown]

NARRATIVE: CASE EVENT DATE: 20210926
